FAERS Safety Report 21534112 (Version 1)
Quarter: 2022Q4

REPORT INFORMATION
  Report Type: Spontaneous
  Country: US (occurrence: US)
  Receive Date: 20221101
  Receipt Date: 20221101
  Transmission Date: 20230113
  Serious: No
  Sender: FDA-Public Use
  Company Number: US-PARATEK PHARMACEUTICALS, INC.-2021PTK00200

PATIENT
  Age: 39 Year
  Sex: Female

DRUGS (4)
  1. NUZYRA [Suspect]
     Active Substance: OMADACYCLINE
     Indication: Pneumonia bacterial
     Dosage: 300 MG, 2X/DAY
     Route: 048
     Dates: start: 20211014, end: 20211014
  2. NUZYRA [Suspect]
     Active Substance: OMADACYCLINE
     Dosage: 300 MG, 1X/DAY
     Route: 048
     Dates: start: 20211015, end: 20211015
  3. IBUPROFEN [Concomitant]
     Active Substance: IBUPROFEN
  4. PREDNISONE [Concomitant]
     Active Substance: PREDNISONE

REACTIONS (6)
  - Dizziness [Recovered/Resolved]
  - Hypoaesthesia [Recovering/Resolving]
  - Paraesthesia [Recovering/Resolving]
  - Blood potassium decreased [Unknown]
  - Nausea [Recovered/Resolved]
  - Vomiting [Recovered/Resolved]

NARRATIVE: CASE EVENT DATE: 20211001
